FAERS Safety Report 4943006-6 (Version None)
Quarter: 2006Q1

REPORT INFORMATION
  Report Type: 
  Country: None (occurrence: None)
  Receive Date: 20060314
  Receipt Date: 20040702
  Transmission Date: 20060701
  Serious: Yes (Other)
  Sender: FDA-Public Use
  Company Number: DE-SANOFI-SYNTHELABO-D01200402

PATIENT
  Age: 62 Year
  Sex: Male
  Weight: 95 kg

DRUGS (12)
  1. FONDAPARINUX [Suspect]
     Indication: ACUTE CORONARY SYNDROME
     Dosage: 2.5MG PER DAY
     Route: 058
     Dates: start: 20040304, end: 20040304
  2. ALLOPURINOL [Concomitant]
     Route: 065
  3. AMITRIPTYLIN [Concomitant]
     Route: 065
  4. ASPIRIN [Concomitant]
     Route: 065
  5. ATORVASTATIN CALCIUM [Concomitant]
     Route: 065
  6. GLIBENCLAMIDE [Concomitant]
     Route: 065
  7. HYDROCHLOROTHIAZIDE [Concomitant]
  8. METFORMIN [Concomitant]
     Dosage: 1700MG PER DAY
     Route: 065
  9. METOPROLOL [Concomitant]
     Dosage: 95MG PER DAY
     Route: 065
  10. PANTOPRAZOLE [Concomitant]
     Route: 065
  11. PLAVIX [Concomitant]
     Route: 065
  12. RAMIPRIL [Concomitant]
     Route: 065

REACTIONS (1)
  - CATHETER RELATED COMPLICATION [None]
